FAERS Safety Report 7907015-7 (Version None)
Quarter: 2011Q4

REPORT INFORMATION
  Report Type: 
  Country: None (occurrence: None)
  Receive Date: 20111110
  Receipt Date: 20111031
  Transmission Date: 20120403
  Serious: Yes (Life-Threatening, Hospitalization, Disabling, Other)
  Sender: FDA-Public Use
  Company Number: US-MERCK-1109USA03033

PATIENT
  Age: 67 Year
  Sex: Female
  Weight: 74 kg

DRUGS (11)
  1. JANUMET [Suspect]
     Indication: TYPE 2 DIABETES MELLITUS
     Route: 048
     Dates: start: 20080415, end: 20110301
  2. ATENOLOL [Concomitant]
     Route: 065
  3. GLIMEPIRIDE [Concomitant]
     Route: 048
  4. TRAZODONE HYDROCHLORIDE [Concomitant]
     Route: 065
  5. LASIX [Concomitant]
     Route: 048
     Dates: start: 20071101
  6. CLONIDINE [Concomitant]
     Route: 065
  7. AMLODIPINE [Concomitant]
     Route: 048
     Dates: start: 20100901
  8. POTASSIUM CHLORIDE [Concomitant]
     Route: 048
     Dates: start: 20071101
  9. SIMVASTATIN [Concomitant]
     Route: 065
  10. ARMOUR THYROID TABLETS [Concomitant]
     Route: 065
  11. METFORMIN [Concomitant]
     Route: 048
     Dates: start: 20090901

REACTIONS (8)
  - COLON CANCER [None]
  - TOXICITY TO VARIOUS AGENTS [None]
  - OESOPHAGITIS [None]
  - HEPATIC LESION [None]
  - PANCREATIC CARCINOMA METASTATIC [None]
  - COLON NEOPLASM [None]
  - LYMPHADENOPATHY [None]
  - OEDEMA PERIPHERAL [None]
